FAERS Safety Report 9781881 (Version 2)
Quarter: 2016Q3

REPORT INFORMATION
  Report Type: Report from Study
  Country: GB (occurrence: GB)
  Receive Date: 20131225
  Receipt Date: 20160901
  Transmission Date: 20161109
  Serious: Yes (Life-Threatening, Other)
  Sender: FDA-Public Use
  Company Number: GB-ROCHE-1324444

PATIENT
  Age: 58 Year
  Sex: Male

DRUGS (5)
  1. SARGRAMOSTIM [Suspect]
     Active Substance: SARGRAMOSTIM
     Indication: PANCREATIC CARCINOMA METASTATIC
     Route: 023
  2. GEMCITABINE HYDROCHLORIDE. [Suspect]
     Active Substance: GEMCITABINE HYDROCHLORIDE
     Indication: PANCREATIC CARCINOMA METASTATIC
     Route: 042
  3. LOPERAMIDE [Concomitant]
     Active Substance: LOPERAMIDE
  4. CAPECITABINE. [Suspect]
     Active Substance: CAPECITABINE
     Indication: PANCREATIC CARCINOMA METASTATIC
     Dosage: AS PER PROTOCOL
     Route: 048
  5. PARACETAMOL [Concomitant]
     Active Substance: ACETAMINOPHEN

REACTIONS (8)
  - Pneumococcal sepsis [Recovered/Resolved]
  - Mastoiditis [Recovered/Resolved]
  - Pyrexia [Not Recovered/Not Resolved]
  - Vomiting [Recovered/Resolved]
  - Orthostatic hypotension [Recovered/Resolved]
  - Agitation [Not Recovered/Not Resolved]
  - Confusional state [Not Recovered/Not Resolved]
  - Fall [Unknown]

NARRATIVE: CASE EVENT DATE: 20091229
